FAERS Safety Report 8950029 (Version 1)
Quarter: 2012Q4

REPORT INFORMATION
  Report Type: 
  Country: SA (occurrence: SA)
  Receive Date: 20121205
  Receipt Date: 20121205
  Transmission Date: 20130627
  Serious: Yes (Other)
  Sender: FDA-Public Use
  Company Number: SA-009507513-1212SAU001776

PATIENT
  Age: 1 Day
  Sex: Female
  Weight: .67 kg

DRUGS (2)
  1. PREGNYL [Suspect]
     Indication: PREGNANCY
     Dosage: UNK
     Route: 064
  2. METRODINE [Suspect]
     Indication: PREGNANCY
     Route: 064

REACTIONS (3)
  - Premature baby [Unknown]
  - Low birth weight baby [Recovered/Resolved]
  - Foetal exposure during pregnancy [Unknown]
